FAERS Safety Report 7174870-0 (Version None)
Quarter: 2010Q4

REPORT INFORMATION
  Report Type: 
  Country: None (occurrence: None)
  Receive Date: 20101219
  Receipt Date: 20101214
  Transmission Date: 20110411
  Serious: Yes (Hospitalization)
  Sender: FDA-Public Use
  Company Number: US-RB-016663-10

PATIENT
  Age: 47 Year
  Sex: Male

DRUGS (4)
  1. SUBOXONE [Suspect]
     Indication: DRUG DEPENDENCE
     Dosage: DOSING INFORMATION UNKNOWN
     Route: 060
     Dates: start: 20100901, end: 20100901
  2. SUBOXONE [Suspect]
     Dosage: DOSE VARIES FROM 16-20 MG DAILY
     Route: 060
     Dates: start: 20100616, end: 20100901
  3. SUBOXONE [Suspect]
     Route: 060
     Dates: start: 20100901, end: 20101130
  4. SUBOXONE [Suspect]
     Indication: DRUG DEPENDENCE
     Dosage: DOSE TAPERED FROM 16 MG DAILY TO DISCONTINUATION
     Route: 060
     Dates: start: 20101201, end: 20101213

REACTIONS (2)
  - INTENTIONAL DRUG MISUSE [None]
  - TRANSPLANT REJECTION [None]
